FAERS Safety Report 4648139-X (Version None)
Quarter: 2005Q2

REPORT INFORMATION
  Report Type: 
  Country: None (occurrence: None)
  Receive Date: 20050331
  Receipt Date: 20041206
  Transmission Date: 20051028
  Serious: Yes (Death)
  Sender: FDA-Public Use
  Company Number: 04P-163-0278790

PATIENT
  Age: 78 Year
  Sex: Female
  Weight: 68.9467 kg

DRUGS (3)
  1. HUMIRA [Suspect]
     Indication: RHEUMATOID ARTHRITIS
     Dosage: 40 MG,  1 IN 2 WK, SUBCUTANEOUS
     Route: 058
     Dates: start: 20030809, end: 20041025
  2. CELECOXIB [Concomitant]
  3. PREDNISONE [Concomitant]

REACTIONS (1)
  - DEATH [None]
